FAERS Safety Report 5756933-7 (Version None)
Quarter: 2008Q2

REPORT INFORMATION
  Report Type: 
  Country: None (occurrence: None)
  Receive Date: 20080603
  Receipt Date: 20080519
  Transmission Date: 20081010
  Serious: Yes (Hospitalization, Other)
  Sender: FDA-Public Use
  Company Number: CA-GENENTECH-261570

PATIENT
  Sex: Male
  Weight: 88 kg

DRUGS (1)
  1. OMALIZUMAB [Suspect]
     Indication: ASTHMA
     Dosage: 300 MG, UNKNOWN
     Route: 058
     Dates: start: 20070831

REACTIONS (1)
  - ASTHMA [None]
